FAERS Safety Report 4455300-6 (Version None)
Quarter: 2004Q3

REPORT INFORMATION
  Report Type: 
  Country: None (occurrence: None)
  Receive Date: 20040825
  Receipt Date: 20040707
  Transmission Date: 20050211
  Serious: No
  Sender: FDA-Public Use
  Company Number: 207671

PATIENT
  Age: 65 Year
  Sex: Female

DRUGS (2)
  1. RAPTIVA [Suspect]
     Indication: PSORIASIS
     Dosage: 0.46 ML,SINGLE,SUBCUTANEOUS; 0.7 ML,1/WEEK,SUBCUTANEOUS
     Route: 058
     Dates: start: 20040625, end: 20040625
  2. RAPTIVA [Suspect]
     Indication: PSORIASIS
     Dosage: 0.46 ML,SINGLE,SUBCUTANEOUS; 0.7 ML,1/WEEK,SUBCUTANEOUS
     Route: 058
     Dates: start: 20040702

REACTIONS (1)
  - MYALGIA [None]
